FAERS Safety Report 6318216-6 (Version None)
Quarter: 2009Q3

REPORT INFORMATION
  Report Type: 
  Country: None (occurrence: None)
  Receive Date: 20090821
  Receipt Date: 20090820
  Transmission Date: 20100115
  Serious: Yes (Other)
  Sender: FDA-Public Use
  Company Number: D0061380A

PATIENT
  Age: 18 Year
  Sex: Male

DRUGS (1)
  1. ATMADISC [Suspect]
     Indication: HOUSE DUST ALLERGY
     Route: 055
     Dates: start: 19990101

REACTIONS (1)
  - GROWTH RETARDATION [None]
